FAERS Safety Report 8435377-3 (Version None)
Quarter: 2012Q2

REPORT INFORMATION
  Report Type: 
  Country: None (occurrence: None)
  Receive Date: 20120614
  Receipt Date: 20120606
  Transmission Date: 20120825
  Serious: Yes (Hospitalization)
  Sender: FDA-Public Use
  Company Number: CA-UCBSA-059278

PATIENT
  Age: 51 Year
  Sex: Female

DRUGS (6)
  1. CIMZIA [Suspect]
     Indication: RHEUMATOID ARTHRITIS
     Dosage: DOSE RECIEVED:05
     Route: 058
     Dates: start: 20120117, end: 20120501
  2. FLUNARIZINE [Concomitant]
     Indication: MIGRAINE
     Dates: start: 20120426
  3. PREDNISONE TAB [Concomitant]
     Indication: RHEUMATOID ARTHRITIS
     Dosage: TOTAL DAILY DOSE: 15 MG
  4. METHOTREXATE [Concomitant]
  5. PREVACID [Concomitant]
     Indication: GASTROOESOPHAGEAL REFLUX DISEASE
  6. ARAVA [Concomitant]

REACTIONS (1)
  - BETA HAEMOLYTIC STREPTOCOCCAL INFECTION [None]
